FAERS Safety Report 21673836 (Version 1)
Quarter: 2022Q4

REPORT INFORMATION
  Report Type: Report from Study
  Country: CH (occurrence: CH)
  Receive Date: 20221202
  Receipt Date: 20221202
  Transmission Date: 20230113
  Serious: Yes (Other)
  Sender: FDA-Public Use
  Company Number: CH-JNJFOC-20221155487

PATIENT
  Age: 7 Decade
  Weight: 54 kg

DRUGS (1)
  1. TECLISTAMAB [Suspect]
     Active Substance: TECLISTAMAB
     Indication: Plasma cell myeloma
     Route: 058

REACTIONS (2)
  - Cytomegalovirus chorioretinitis [Unknown]
  - Cytomegalovirus viraemia [Unknown]

NARRATIVE: CASE EVENT DATE: 20221116
